FAERS Safety Report 10236475 (Version 1)
Quarter: 2014Q2

REPORT INFORMATION
  Report Type: Report from Study
  Country: ES (occurrence: ES)
  Receive Date: 20140613
  Receipt Date: 20140613
  Transmission Date: 20141212
  Serious: Yes (Hospitalization, Other)
  Sender: FDA-Public Use
  Company Number: ES-BRISTOL-MYERS SQUIBB COMPANY-20952891

PATIENT
  Age: 54 Year
  Sex: Male

DRUGS (3)
  1. SPRYCEL [Suspect]
     Indication: CHRONIC MYELOID LEUKAEMIA
     Dosage: DOSE DECREASED TO 80 MG
     Dates: start: 200811
  2. SIMVASTATIN [Concomitant]
  3. EMCOR [Concomitant]

REACTIONS (3)
  - Osteonecrosis [Recovered/Resolved]
  - Pericardial effusion [Recovered/Resolved]
  - Drug intolerance [Unknown]
